FAERS Safety Report 14872642 (Version 2)
Quarter: 2018Q3

REPORT INFORMATION
  Report Type: Report from Study
  Country: US (occurrence: US)
  Receive Date: 20180510
  Receipt Date: 20180717
  Transmission Date: 20181010
  Serious: Yes (Hospitalization, Other)
  Sender: FDA-Public Use
  Company Number: US-TEVA-2018-US-878678

PATIENT
  Age: 55 Year
  Sex: Female

DRUGS (13)
  1. CLONOPIN [Concomitant]
     Active Substance: CLONAZEPAM
     Indication: INSOMNIA
     Dosage: .5 MILLIGRAM DAILY; AT NIGHT
     Route: 048
     Dates: start: 2014, end: 20150520
  2. LAMICTAL [Concomitant]
     Active Substance: LAMOTRIGINE
     Indication: DEPRESSION
     Dosage: 200 MILLIGRAM DAILY; AT NIGHT
     Route: 048
     Dates: start: 2013, end: 20150520
  3. VENLAFAXINE [Concomitant]
     Active Substance: VENLAFAXINE HYDROCHLORIDE
     Indication: ANXIETY
  4. FOLIC ACID. [Concomitant]
     Active Substance: FOLIC ACID
     Indication: DEPRESSION
     Dosage: 1 MILLIGRAM DAILY; IN THE MORNING
     Route: 048
     Dates: start: 20140919
  5. FLONASE [Concomitant]
     Active Substance: FLUTICASONE PROPIONATE
     Indication: HYPERSENSITIVITY
     Dosage: 1?2 SPRAYS IN THE MORNING
     Route: 045
     Dates: start: 20140919
  6. WELLBUTRIN [Concomitant]
     Active Substance: BUPROPION HYDROCHLORIDE
     Indication: DEPRESSION
     Dosage: 300 MILLIGRAM DAILY; IN THE MORNING
     Route: 048
     Dates: start: 20171114, end: 20180301
  7. MELATONIN [Concomitant]
     Active Substance: MELATONIN
     Indication: INSOMNIA
     Dosage: 5 MILLIGRAM DAILY; AT NIGHT
     Route: 048
     Dates: start: 2014
  8. CLONOPIN [Concomitant]
     Active Substance: CLONAZEPAM
     Dosage: 2 MILLIGRAM DAILY; AT NIGHT
     Route: 048
     Dates: start: 20150520
  9. VENLAFAXINE [Concomitant]
     Active Substance: VENLAFAXINE HYDROCHLORIDE
     Indication: DEPRESSION
     Dosage: 150 MILLIGRAM DAILY; IN THE MORNING
     Route: 048
     Dates: start: 20141104
  10. XENAZINE [Concomitant]
     Active Substance: TETRABENAZINE
     Indication: HUNTINGTON^S DISEASE
     Dosage: 50 MILLIGRAM DAILY; IN THE MORNING AND AT NIGHT
     Route: 048
     Dates: start: 20150520
  11. AUSTEDO [Suspect]
     Active Substance: DEUTETRABENAZINE
     Indication: HUNTINGTON^S DISEASE
     Dosage: 48 MILLIGRAM DAILY; TWO 12MG TABLETS TWICE DAILY ? IN THE MORNING AND AT NIGHT.
     Route: 065
     Dates: start: 20170802, end: 20180301
  12. LAMICTAL [Concomitant]
     Active Substance: LAMOTRIGINE
     Dosage: 150 MILLIGRAM DAILY;
     Route: 048
     Dates: start: 20150520
  13. OXYBUTYNIN. [Concomitant]
     Active Substance: OXYBUTYNIN CHLORIDE
     Indication: INCONTINENCE
     Dosage: 5 MILLIGRAM DAILY; IN THE MORNING
     Route: 048
     Dates: start: 2013

REACTIONS (4)
  - Anxiety [Unknown]
  - Suicide attempt [Recovered/Resolved]
  - Intentional overdose [Unknown]
  - Depression [Unknown]

NARRATIVE: CASE EVENT DATE: 20180228
